FAERS Safety Report 7298846-8 (Version None)
Quarter: 2011Q1

REPORT INFORMATION
  Report Type: 
  Country: None (occurrence: None)
  Receive Date: 20110217
  Receipt Date: 20110211
  Transmission Date: 20110831
  Serious: Yes (Life-Threatening, Hospitalization)
  Sender: FDA-Public Use
  Company Number: DE-CELGENEUS-062-50794-11011090

PATIENT
  Age: 77 Year
  Sex: Female
  Weight: 56.4 kg

DRUGS (8)
  1. METFORMIN [Concomitant]
     Route: 065
  2. NEULASTA [Concomitant]
     Route: 065
     Dates: start: 20101223, end: 20101223
  3. VIDAZA [Suspect]
     Route: 058
     Dates: start: 20101213, end: 20101221
  4. PANTOPRAZOLE [Concomitant]
     Route: 065
  5. FILGRASTIM [Concomitant]
     Route: 065
     Dates: start: 20110110, end: 20110110
  6. VIDAZA [Suspect]
     Indication: MYELODYSPLASTIC SYNDROME
     Route: 058
     Dates: start: 20101102, end: 20101110
  7. BELOC ZOK [Concomitant]
     Route: 065
  8. METOCLOPRAMIDE HCL [Concomitant]
     Route: 065

REACTIONS (2)
  - ACUTE LYMPHOCYTIC LEUKAEMIA [None]
  - ANAL INFECTION [None]
